FAERS Safety Report 6991309-6 (Version None)
Quarter: 2010Q3

REPORT INFORMATION
  Report Type: 
  Country: None (occurrence: None)
  Receive Date: 20100916
  Receipt Date: 20090819
  Transmission Date: 20110219
  Serious: No
  Sender: FDA-Public Use
  Company Number: US-WYE-H10651409

PATIENT
  Sex: Male

DRUGS (2)
  1. PRISTIQ [Suspect]
     Indication: ANXIETY
     Route: 048
     Dates: start: 20090814
  2. PRISTIQ [Suspect]
     Indication: STRESS

REACTIONS (4)
  - ANXIETY [None]
  - CONDITION AGGRAVATED [None]
  - DECREASED APPETITE [None]
  - WEIGHT DECREASED [None]
